FAERS Safety Report 9020733 (Version 1)
Quarter: 2013Q1

REPORT INFORMATION
  Report Type: Spontaneous
  Country: US (occurrence: US)
  Receive Date: 20130119
  Receipt Date: 20130119
  Transmission Date: 20140127
  Serious: No
  Sender: FDA-Public Use
  Company Number: US-ALLERGAN-1204646US

PATIENT
  Age: 48 Year
  Sex: Female

DRUGS (6)
  1. BOTOX COSMETIC [Suspect]
     Indication: SKIN WRINKLING
     Dosage: 20 UNITS, SINGLE
     Route: 030
     Dates: start: 20120328, end: 20120328
  2. BOTOX COSMETIC [Suspect]
     Indication: SKIN WRINKLING
     Dosage: UNK
     Dates: start: 201111, end: 201111
  3. BOTOX COSMETIC [Suspect]
     Indication: SKIN WRINKLING
     Dosage: UNK
     Dates: start: 20080521, end: 20080521
  4. BOTOX COSMETIC [Suspect]
     Dosage: UNK
     Dates: start: 20070615, end: 20070615
  5. BOTOX COSMETIC [Suspect]
     Dosage: UNK
     Dates: start: 20070601, end: 20070601
  6. XANAX [Concomitant]

REACTIONS (9)
  - Muscle tightness [Recovered/Resolved]
  - Tension headache [Recovered/Resolved]
  - Chest discomfort [Recovered/Resolved]
  - Muscle tightness [Recovered/Resolved]
  - Abdominal discomfort [Recovered/Resolved]
  - Panic attack [Recovered/Resolved]
  - Anxiety [Recovered/Resolved]
  - Malaise [Recovered/Resolved]
  - Dyspnoea [Recovered/Resolved]
